FAERS Safety Report 12211816 (Version 1)
Quarter: 2016Q1

REPORT INFORMATION
  Report Type: Spontaneous
  Country: DK (occurrence: CH)
  Receive Date: 20160325
  Receipt Date: 20160325
  Transmission Date: 20160526
  Serious: Yes (Hospitalization)
  Sender: FDA-Public Use
  Company Number: CH-FRI-1000083355

PATIENT
  Sex: Male
  Weight: 68 kg

DRUGS (15)
  1. MARCOUMAR [Interacting]
     Active Substance: PHENPROCOUMON
     Route: 048
     Dates: start: 20160115
  2. VI-DE 3 [Concomitant]
     Active Substance: CHOLECALCIFEROL
     Indication: PRODUCT USED FOR UNKNOWN INDICATION
     Route: 048
  3. AUGMENTIN [Concomitant]
     Active Substance: AMOXICILLIN\CLAVULANATE POTASSIUM
     Indication: PRODUCT USED FOR UNKNOWN INDICATION
     Dosage: 3.6 G
     Route: 042
     Dates: start: 20160112, end: 20160114
  4. MEMANTINE. [Suspect]
     Active Substance: MEMANTINE
     Indication: DEMENTIA ALZHEIMER^S TYPE
     Dosage: 20 MG
     Route: 048
     Dates: end: 20160110
  5. TRIATEC [Concomitant]
     Active Substance: RAMIPRIL
     Indication: PRODUCT USED FOR UNKNOWN INDICATION
     Dosage: 2.5 MG
     Route: 048
  6. TOREM [Concomitant]
     Active Substance: TORSEMIDE
     Indication: PRODUCT USED FOR UNKNOWN INDICATION
     Dosage: 5 MG
     Route: 048
  7. MARCOUMAR [Interacting]
     Active Substance: PHENPROCOUMON
     Indication: PULMONARY EMBOLISM
     Route: 048
     Dates: start: 20160114
  8. MARCOUMAR [Interacting]
     Active Substance: PHENPROCOUMON
     Route: 048
     Dates: start: 20160119
  9. RISPERDAL [Concomitant]
     Active Substance: RISPERIDONE
     Indication: PRODUCT USED FOR UNKNOWN INDICATION
     Route: 048
  10. ESOMEP [Concomitant]
     Active Substance: ESOMEPRAZOLE
     Indication: PRODUCT USED FOR UNKNOWN INDICATION
     Dosage: 40 MG
     Route: 048
  11. MARCOUMAR [Interacting]
     Active Substance: PHENPROCOUMON
     Route: 048
     Dates: start: 20160118
  12. CONCOR [Concomitant]
     Active Substance: BISOPROLOL FUMARATE
     Indication: PRODUCT USED FOR UNKNOWN INDICATION
     Dosage: 2.5 MG
     Route: 048
  13. PANTOZOL [Concomitant]
     Active Substance: PANTOPRAZOLE SODIUM
     Indication: PRODUCT USED FOR UNKNOWN INDICATION
     Dosage: 40 MG
     Route: 048
  14. MEMANTINE. [Interacting]
     Active Substance: MEMANTINE
     Dosage: 20 MG
     Route: 048
     Dates: start: 20160112, end: 20160121
  15. VITAMIN B12 [Concomitant]
     Active Substance: CYANOCOBALAMIN
     Indication: PRODUCT USED FOR UNKNOWN INDICATION
     Dosage: 0.0111 DF
     Route: 058

REACTIONS (3)
  - Pulmonary embolism [Recovering/Resolving]
  - International normalised ratio increased [Not Recovered/Not Resolved]
  - Drug interaction [Unknown]

NARRATIVE: CASE EVENT DATE: 201601
